FAERS Safety Report 4859820-1 (Version None)
Quarter: 2005Q4

REPORT INFORMATION
  Report Type: 
  Country: None (occurrence: None)
  Receive Date: 20051219
  Receipt Date: 20051124
  Transmission Date: 20060501
  Serious: Yes (Other)
  Sender: FDA-Public Use
  Company Number: SE-GLAXOSMITHKLINE-B0402900A

PATIENT
  Age: 92 Year
  Sex: Male

DRUGS (6)
  1. AVODART [Suspect]
     Indication: PROSTATISM
     Dosage: .5MG PER DAY
     Route: 048
     Dates: start: 20040401, end: 20050401
  2. XATRAL [Suspect]
     Indication: PROSTATISM
     Dosage: 10MG PER DAY
     Route: 048
     Dates: start: 20050401, end: 20050401
  3. LANACRIST [Concomitant]
  4. WARAN [Concomitant]
  5. SPIRONOLAKTON [Concomitant]
  6. TRIATEC [Concomitant]

REACTIONS (2)
  - HALLUCINATION [None]
  - VISUAL DISTURBANCE [None]
